FAERS Safety Report 9129644 (Version 1)
Quarter: 2013Q1

REPORT INFORMATION
  Report Type: Report from Study
  Country: CA (occurrence: CA)
  Receive Date: 20130228
  Receipt Date: 20130228
  Transmission Date: 20140127
  Serious: Yes (Other)
  Sender: FDA-Public Use
  Company Number: CA-ROCHE-1196312

PATIENT
  Age: 53 Year
  Sex: 0

DRUGS (8)
  1. AVASTIN [Suspect]
     Indication: COLORECTAL CANCER
     Route: 065
     Dates: start: 20120727
  2. AVASTIN [Suspect]
     Route: 065
     Dates: start: 20121228
  3. FOLINIC ACID [Suspect]
     Indication: COLORECTAL CANCER
     Route: 065
     Dates: start: 20120713
  4. FOLINIC ACID [Suspect]
     Route: 065
     Dates: start: 20121228
  5. FLUOROURACIL [Suspect]
     Indication: COLORECTAL CANCER
     Route: 065
     Dates: start: 20120713
  6. FLUOROURACIL [Suspect]
     Route: 065
     Dates: start: 20121228
  7. IRINOTECAN [Suspect]
     Indication: COLORECTAL CANCER
     Route: 065
     Dates: start: 20120713
  8. IRINOTECAN [Suspect]
     Route: 065
     Dates: start: 20121228

REACTIONS (1)
  - Atrial fibrillation [Unknown]
